FAERS Safety Report 9812953 (Version 1)
Quarter: 2014Q1

REPORT INFORMATION
  Report Type: Spontaneous
  Country: US (occurrence: US)
  Receive Date: 20140113
  Receipt Date: 20140113
  Transmission Date: 20141002
  Serious: Yes (Death)
  Sender: FDA-Public Use
  Company Number: US-BAYER-2014-002096

PATIENT
  Age: 27 Year
  Sex: Female

DRUGS (7)
  1. DOXYLAMINE [Suspect]
     Route: 065
  2. DEXTROMETHORPHAN (ROMILAR, XINLI) +/- GUAIFENESIN [Suspect]
     Route: 065
  3. FENTANYL [Suspect]
     Route: 065
  4. OXYCODONE [Suspect]
     Route: 065
  5. CLONAZEPAM [Suspect]
     Route: 065
  6. TRAZODONE [Suspect]
     Route: 065
  7. CITALOPRAM [Suspect]
     Route: 065

REACTIONS (1)
  - Drug abuse [Fatal]
